FAERS Safety Report 14470538 (Version 4)
Quarter: 2018Q2

REPORT INFORMATION
  Report Type: Report from Study
  Country: US (occurrence: US)
  Receive Date: 20180131
  Receipt Date: 20180628
  Transmission Date: 20180711
  Serious: Yes (Death, Other)
  Sender: FDA-Public Use
  Company Number: PHEH2018US003295

PATIENT
  Sex: Male

DRUGS (2)
  1. TAFINLAR [Suspect]
     Active Substance: DABRAFENIB MESYLATE
     Indication: RECTAL CANCER
     Dosage: 150 MG, BID
     Route: 048
     Dates: start: 20171227
  2. MEKINIST [Suspect]
     Active Substance: TRAMETINIB DIMETHYL SULFOXIDE
     Indication: RECTAL CANCER
     Dosage: 1 DF, QD
     Route: 048
     Dates: start: 20171227

REACTIONS (4)
  - Malignant neoplasm progression [Fatal]
  - Rectal cancer [Fatal]
  - Product use in unapproved indication [Unknown]
  - Terminal state [Unknown]
